FAERS Safety Report 11924288 (Version 1)
Quarter: 2016Q1

REPORT INFORMATION
  Report Type: Spontaneous
  Country: US (occurrence: US)
  Receive Date: 20160118
  Receipt Date: 20160118
  Transmission Date: 20160526
  Serious: No
  Sender: FDA-Public Use
  Company Number: US-PERRIGO-15US007160

PATIENT
  Age: 49 Year
  Sex: Female
  Weight: 62.59 kg

DRUGS (3)
  1. TIOCONAZOLE 6.5% 426 [Suspect]
     Active Substance: TIOCONAZOLE
     Dosage: 300 MG, SINGLE
     Route: 067
     Dates: start: 20150703, end: 20150703
  2. ANTIHYPERTENSIVES [Concomitant]
     Active Substance: UNSPECIFIED INGREDIENT
     Indication: HYPERTENSION
     Dosage: UNK
     Route: 048
  3. TIOCONAZOLE 6.5% 426 [Suspect]
     Active Substance: TIOCONAZOLE
     Indication: VULVOVAGINAL MYCOTIC INFECTION
     Dosage: 300 MG, SINGLE
     Route: 067
     Dates: start: 201501, end: 201501

REACTIONS (7)
  - Vulvovaginal erythema [Recovered/Resolved]
  - Hypersensitivity [Recovered/Resolved]
  - Vulvovaginal burning sensation [Recovered/Resolved]
  - Urticaria [Recovered/Resolved]
  - Palpitations [Recovered/Resolved]
  - Chills [Recovered/Resolved]
  - Vulvovaginal swelling [Recovered/Resolved]

NARRATIVE: CASE EVENT DATE: 201501
